FAERS Safety Report 7684062-4 (Version None)
Quarter: 2011Q3

REPORT INFORMATION
  Report Type: 
  Country: None (occurrence: None)
  Receive Date: 20110815
  Receipt Date: 20110810
  Transmission Date: 20111222
  Serious: Yes (Other)
  Sender: FDA-Public Use
  Company Number: CA-B.I. PHARMACEUTICALS,INC./RIDGEFIELD-2011-CN-01131CN

PATIENT
  Age: 77 Year
  Sex: Female

DRUGS (9)
  1. PRADAXA [Suspect]
     Dosage: 300 MG
  2. DIMIDON [Concomitant]
  3. VALSARTAN [Concomitant]
  4. AMITRIPTYLINE HCL [Concomitant]
  5. SYNTHROID [Concomitant]
  6. DULCOLAX [Concomitant]
  7. ADALAT [Concomitant]
  8. HYDROCHLOROTHIAZIDE [Concomitant]
  9. CRESTOR [Concomitant]

REACTIONS (1)
  - AGRANULOCYTOSIS [None]
